FAERS Safety Report 23998043 (Version 1)
Quarter: 2024Q2

REPORT INFORMATION
  Report Type: Spontaneous
  Country: CA (occurrence: CA)
  Receive Date: 20240621
  Receipt Date: 20240621
  Transmission Date: 20240716
  Serious: Yes (Other)
  Sender: FDA-Public Use
  Company Number: CA-CELLTRION INC.-2024CA014807

PATIENT

DRUGS (1)
  1. TRASTUZUMAB [Suspect]
     Active Substance: TRASTUZUMAB
     Indication: Breast cancer metastatic
     Dosage: 1 EVERY 3 WEEKS
     Route: 042

REACTIONS (3)
  - Cardiac ventricular thrombosis [Unknown]
  - Ejection fraction decreased [Unknown]
  - Cardiac dysfunction [Unknown]
